FAERS Safety Report 9233278 (Version 1)
Quarter: 2013Q2

REPORT INFORMATION
  Report Type: Spontaneous
  Country: US (occurrence: US)
  Receive Date: 20130416
  Receipt Date: 20130416
  Transmission Date: 20140414
  Serious: No
  Sender: FDA-Public Use
  Company Number: US-BANPHARM-20130870

PATIENT
  Age: 57 Year
  Sex: Male
  Weight: 113.85 kg

DRUGS (9)
  1. ALEVE LIQUID GELS 220MG [Suspect]
     Indication: PAIN
     Dosage: 2 DF, PRN,
     Route: 048
     Dates: start: 2011
  2. NIACIN [Concomitant]
  3. FISH OIL [Concomitant]
  4. DILTIAZEM [Concomitant]
  5. GENERIC BABY ASPIRIN [Concomitant]
  6. LISINOPRIL [Concomitant]
  7. HYDROCHLOROTHIAZIDE [Concomitant]
  8. METFORMIN [Concomitant]
  9. GLIMEPIRIDE [Concomitant]

REACTIONS (1)
  - Dizziness [Recovered/Resolved]
